FAERS Safety Report 6044304-8 (Version None)
Quarter: 2009Q1

REPORT INFORMATION
  Report Type: 
  Country: None (occurrence: None)
  Receive Date: 20090120
  Receipt Date: 20090112
  Transmission Date: 20090719
  Serious: Yes (Other)
  Sender: FDA-Public Use
  Company Number: US-ASTRAZENECA-2009UW01022

PATIENT
  Age: 51 Year
  Sex: Female
  Weight: 74.4 kg

DRUGS (14)
  1. SEROQUEL [Suspect]
     Indication: SLEEP DISORDER
     Dosage: 400 MG
     Route: 048
     Dates: start: 20060101
  2. SEROQUEL [Suspect]
     Indication: MIGRAINE
     Dosage: 400 MG
     Route: 048
     Dates: start: 20060101
  3. NEURONTIN [Concomitant]
  4. PROTONIX [Concomitant]
  5. ULTRAM [Concomitant]
  6. ZOCOR [Concomitant]
  7. KEFLEX [Concomitant]
  8. PHENERGAN HCL [Concomitant]
  9. ASPIRIN [Concomitant]
  10. BENTIL [Concomitant]
  11. CYMBALTA [Concomitant]
  12. LEXAPRO [Concomitant]
  13. MOBIC [Concomitant]
  14. NASONEX [Concomitant]

REACTIONS (1)
  - GOITRE [None]
